FAERS Safety Report 23027514 (Version 1)
Quarter: 2023Q4

REPORT INFORMATION
  Report Type: Other
  Country: None (occurrence: US)
  Receive Date: 20231004
  Receipt Date: 20231004
  Transmission Date: 20240109
  Serious: Yes (Life-Threatening, Hospitalization)
  Sender: FDA-Public Use
  Company Number: US-B.Braun Medical Inc.-2146644

PATIENT
  Age: 67 Year
  Sex: Male

DRUGS (2)
  1. ACETAMINOPHEN [Suspect]
     Active Substance: ACETAMINOPHEN
     Indication: Suicide attempt
  2. AMIFAMPRIDINE [Suspect]
     Active Substance: AMIFAMPRIDINE

REACTIONS (12)
  - Intentional overdose [None]
  - Hypertension [None]
  - Hyperhidrosis [None]
  - Tachypnoea [None]
  - Feeling jittery [None]
  - Tremor [None]
  - Tachycardia [None]
  - Blood lactic acid increased [None]
  - Blood potassium increased [None]
  - Epilepsy [None]
  - Pulseless electrical activity [None]
  - Cardiac arrest [None]
